FAERS Safety Report 5226823-7 (Version None)
Quarter: 2007Q1

REPORT INFORMATION
  Report Type: 
  Country: None (occurrence: None)
  Receive Date: 20070130
  Receipt Date: 20070111
  Transmission Date: 20070707
  Serious: Yes (Hospitalization)
  Sender: FDA-Public Use
  Company Number: 8021258

PATIENT
  Age: 55 Year
  Sex: Male

DRUGS (1)
  1. THEOPHYLLINE [Suspect]

REACTIONS (6)
  - CONVULSION [None]
  - COUGH [None]
  - DRUG TOXICITY [None]
  - FLUSHING [None]
  - OVERDOSE [None]
  - TACHYCARDIA [None]
